FAERS Safety Report 25499796 (Version 1)
Quarter: 2025Q2

REPORT INFORMATION
  Report Type: Spontaneous
  Country: US (occurrence: None)
  Receive Date: 20250630
  Receipt Date: 20250630
  Transmission Date: 20250717
  Serious: Yes (Other)
  Sender: FDA-CTU
  Company Number: None

PATIENT
  Age: 36 Year
  Sex: Female

DRUGS (1)
  1. BRIUMVI [Suspect]
     Active Substance: UBLITUXIMAB-XIIY
     Indication: Multiple sclerosis
     Route: 042
     Dates: start: 20250630, end: 20250630

REACTIONS (5)
  - Chest pain [None]
  - Chest discomfort [None]
  - Back pain [None]
  - Muscle contractions involuntary [None]
  - Infusion related reaction [None]

NARRATIVE: CASE EVENT DATE: 20250630
